FAERS Safety Report 8504442-4 (Version None)
Quarter: 2012Q3

REPORT INFORMATION
  Report Type: 
  Country: None (occurrence: None)
  Receive Date: 20120711
  Receipt Date: 20120629
  Transmission Date: 20120928
  Serious: No
  Sender: FDA-Public Use
  Company Number: US-ASTRAZENECA-2012SE45015

PATIENT
  Age: 59 Year
  Sex: Female

DRUGS (12)
  1. PRILOSEC OTC [Suspect]
     Route: 048
  2. XANAX [Concomitant]
  3. ALEVE [Concomitant]
  4. VERAMYST [Concomitant]
  5. ACETAMINOPHEN [Concomitant]
     Indication: PYREXIA
  6. CRESTOR [Suspect]
     Route: 048
  7. IBUPROFEN [Concomitant]
     Indication: ARTHRITIS
  8. CALCIUM CARBONATE [Concomitant]
  9. CLARITIN [Concomitant]
  10. SUDAFED 12 HOUR [Concomitant]
  11. ALAWAY [Concomitant]
  12. MULTI-VITAMINS [Concomitant]

REACTIONS (2)
  - ANXIETY [None]
  - DEPRESSION [None]
